FAERS Safety Report 9364212 (Version 1)
Quarter: 2013Q2

REPORT INFORMATION
  Report Type: Spontaneous
  Country: FR (occurrence: FR)
  Receive Date: 20130624
  Receipt Date: 20130624
  Transmission Date: 20140414
  Serious: Yes (Hospitalization, Other)
  Sender: FDA-Public Use
  Company Number: FR-ASTRAZENECA-2013SE46596

PATIENT
  Age: 27798 Day
  Sex: Male

DRUGS (9)
  1. INEXIUM [Suspect]
     Indication: GASTROINTESTINAL HAEMORRHAGE
     Route: 048
     Dates: start: 20130308, end: 20130329
  2. VANCOMYCINE SANDOZ [Suspect]
     Indication: DEVICE RELATED INFECTION
     Route: 065
     Dates: start: 20130322, end: 20130323
  3. MIANSERINE ARROW [Suspect]
     Route: 065
     Dates: start: 20130319, end: 20130329
  4. ADRENALINE [Concomitant]
     Indication: CARDIOGENIC SHOCK
     Dates: start: 20130222
  5. DOBUTAMINE [Concomitant]
     Indication: CARDIOGENIC SHOCK
     Dates: start: 20130222
  6. DIGOXINE [Concomitant]
     Dates: start: 20130225, end: 20130311
  7. BISOPROLOL [Concomitant]
     Dates: start: 20130304
  8. LASILIX [Concomitant]
     Dates: start: 20130222, end: 20130321
  9. PREVISCAN [Concomitant]
     Indication: ATRIAL FIBRILLATION
     Dates: start: 20130312

REACTIONS (4)
  - Agranulocytosis [Recovered/Resolved]
  - Device related infection [Unknown]
  - Staphylococcal infection [Unknown]
  - Atrial fibrillation [Unknown]
